FAERS Safety Report 22173232 (Version 5)
Quarter: 2023Q2

REPORT INFORMATION
  Report Type: Report from Study
  Country: FR (occurrence: None)
  Receive Date: 20230404
  Receipt Date: 20230626
  Transmission Date: 20230722
  Serious: Yes (Hospitalization)
  Sender: FDA-Public Use
  Company Number: FR-ROCHE-3286649

PATIENT
  Age: 57 Year
  Sex: Male
  Weight: 94 kg

DRUGS (7)
  1. MOSUNETUZUMAB [Suspect]
     Active Substance: MOSUNETUZUMAB
     Indication: Non-Hodgkin^s lymphoma
     Dosage: ON 01/FEB/2023 FROM 1:05 PM TO 3:04 PM MOST RECENT DOSE OF MOSUNETUZUMAB (30 MG) WAS ADMINISTERED PR
     Route: 042
     Dates: start: 20221130
  2. LENALIDOMIDE [Suspect]
     Active Substance: LENALIDOMIDE
     Indication: Non-Hodgkin^s lymphoma
     Dosage: ON 10/FEB/2023, MOST RECENT DOSE OF LENALIDOMIDE (20 MG) WAS ADMINISTERED PRIOR TO AE/SAE
     Route: 048
     Dates: start: 20230104
  3. TOCILIZUMAB [Suspect]
     Active Substance: TOCILIZUMAB
     Indication: Non-Hodgkin^s lymphoma
     Dosage: ON 02-DEC-2022, SHE RECEIVED MOST RECENT DOSE OF TOCILIZUMAB AT 745 MG PRIOR TO AE/SAE ONSET.
     Route: 042
     Dates: start: 20221201
  4. BACTRIM [Concomitant]
     Active Substance: SULFAMETHOXAZOLE\TRIMETHOPRIM
     Route: 048
     Dates: start: 20221130
  5. VALACYCLOVIR HYDROCHLORIDE [Concomitant]
     Active Substance: VALACYCLOVIR HYDROCHLORIDE
     Route: 048
     Dates: start: 20221130
  6. LEUCOVORIN CALCIUM [Concomitant]
     Active Substance: LEUCOVORIN CALCIUM
     Route: 048
     Dates: start: 20221130
  7. OXYGEN [Concomitant]
     Active Substance: OXYGEN
     Indication: Hypoxia
     Dosage: HIGH-FLOW

REACTIONS (1)
  - Pneumonia influenzal [Recovered/Resolved]

NARRATIVE: CASE EVENT DATE: 20230211
